FAERS Safety Report 9531462 (Version 1)
Quarter: 2013Q2

REPORT INFORMATION
  Report Type: Spontaneous
  Country: US (occurrence: None)
  Receive Date: 20130503
  Receipt Date: 20130503
  Transmission Date: 20140414
  Serious: No
  Sender: FDA-Public Use
  Company Number: 1000044108

PATIENT
  Age: 63 Year
  Sex: Male

DRUGS (4)
  1. DALIRESP (ROFLUMILAST) (500 MICROGRAM, TABLETS) [Suspect]
     Indication: CHRONIC OBSTRUCTIVE PULMONARY DISEASE
     Route: 048
     Dates: start: 201303
  2. ADVAIR (SERETIDE) (SERETIDE) [Concomitant]
  3. SPIRIVA (TIOTROPIUM BROMIDE) (TIOTROPIUM BROMIDE) [Concomitant]
  4. CARDIZEM (DILTIAZEM) (DILTIAZEM) [Concomitant]

REACTIONS (3)
  - Insomnia [None]
  - Nausea [None]
  - Decreased appetite [None]
